FAERS Safety Report 6581068-3 (Version None)
Quarter: 2010Q1

REPORT INFORMATION
  Report Type: 
  Country: None (occurrence: None)
  Receive Date: 20100215
  Receipt Date: 20100203
  Transmission Date: 20100710
  Serious: Yes (Hospitalization)
  Sender: FDA-Public Use
  Company Number: PHFR2006GB02038

PATIENT
  Sex: Female

DRUGS (3)
  1. CLOZARIL [Suspect]
     Indication: SCHIZOPHRENIA
     Dosage: 50MG + 150MG
     Route: 048
  2. CHLORPROMAZINE [Concomitant]
     Route: 065
  3. RISPERDAL [Concomitant]
     Route: 058

REACTIONS (2)
  - CONVERSION DISORDER [None]
  - GRAND MAL CONVULSION [None]
